FAERS Safety Report 12662634 (Version 3)
Quarter: 2016Q3

REPORT INFORMATION
  Report Type: Spontaneous
  Country: US (occurrence: US)
  Receive Date: 20160818
  Receipt Date: 20160920
  Transmission Date: 20161109
  Serious: No
  Sender: FDA-Public Use
  Company Number: US-ASTRAZENECA-2016SE88283

PATIENT
  Age: 67 Year
  Sex: Female

DRUGS (1)
  1. NEXIUM 24HR [Suspect]
     Active Substance: ESOMEPRAZOLE MAGNESIUM
     Indication: GASTROOESOPHAGEAL REFLUX DISEASE
     Dosage: TWO DAILY AT NIGHT BEFORE BED
     Route: 048

REACTIONS (7)
  - Disease recurrence [Unknown]
  - Poor quality drug administered [Recovered/Resolved]
  - Gastrooesophageal reflux disease [Unknown]
  - Drug ineffective for unapproved indication [Recovered/Resolved]
  - Product use issue [Recovered/Resolved]
  - Product quality issue [Unknown]
  - Product physical issue [Recovered/Resolved]
